FAERS Safety Report 17198918 (Version 2)
Quarter: 2020Q1

REPORT INFORMATION
  Report Type: Report from Study
  Country: FR (occurrence: FR)
  Receive Date: 20191225
  Receipt Date: 20200308
  Transmission Date: 20200409
  Serious: Yes (Hospitalization, Other)
  Sender: FDA-Public Use
  Company Number: NVSC2019FR040416

PATIENT
  Age: 19 Year
  Sex: Male
  Weight: 71.8 kg

DRUGS (7)
  1. ALPRAZOLAM. [Concomitant]
     Active Substance: ALPRAZOLAM
     Indication: ANKYLOSING SPONDYLITIS
     Route: 065
  2. AMOXICILLIN. [Suspect]
     Active Substance: AMOXICILLIN
     Indication: EAR INFECTION
     Dosage: 2 G, QD
     Route: 065
     Dates: start: 20191015
  3. SECUKINUMAB. [Suspect]
     Active Substance: SECUKINUMAB
     Indication: SPONDYLITIS
     Dosage: UNK
     Route: 058
     Dates: start: 20190802, end: 20190925
  4. VOLTARENE [Concomitant]
     Indication: ANKYLOSING SPONDYLITIS
     Route: 065
  5. TRAMADOL. [Concomitant]
     Active Substance: TRAMADOL
     Indication: ANKYLOSING SPONDYLITIS
     Route: 065
  6. PARACETAMOL [Concomitant]
     Active Substance: ACETAMINOPHEN
     Indication: ANKYLOSING SPONDYLITIS
     Route: 065
  7. FLUOXETINE [Concomitant]
     Active Substance: FLUOXETINE HYDROCHLORIDE
     Indication: ANKYLOSING SPONDYLITIS
     Route: 065

REACTIONS (3)
  - Helicobacter gastritis [Recovered/Resolved]
  - Clostridium difficile colitis [Recovered/Resolved]
  - Drug-induced liver injury [Recovered/Resolved]

NARRATIVE: CASE EVENT DATE: 20191019
